FAERS Safety Report 24098049 (Version 1)
Quarter: 2024Q3

REPORT INFORMATION
  Report Type: Spontaneous
  Country: EG (occurrence: EG)
  Receive Date: 20240716
  Receipt Date: 20240716
  Transmission Date: 20241017
  Serious: Yes (Hospitalization)
  Sender: SANOFI AVENTIS
  Company Number: EG-SA-SAC20240712000437

PATIENT
  Age: 61 Year
  Sex: Male

DRUGS (14)
  1. AMARYL [Suspect]
     Active Substance: GLIMEPIRIDE
     Indication: Diabetes mellitus
     Dosage: 4 MG, QD
     Route: 048
     Dates: start: 2021
  2. TRENTAL [Concomitant]
     Active Substance: PENTOXIFYLLINE
     Dosage: 400 MG, BID
     Route: 048
  3. ELIQUIS [Concomitant]
     Active Substance: APIXABAN
     Dosage: 5 MG, BID
     Route: 048
  4. TAMSULOSIN HYDROCHLORIDE [Concomitant]
     Active Substance: TAMSULOSIN HYDROCHLORIDE
     Dosage: 0.4 MG, QD
     Route: 048
  5. ROWATINEX [ANETHOLE;BORNEOL;CINEOLE;FENCHONE;PINENE] [Concomitant]
     Dosage: UNK, TID
  6. BISOPROLOL FUMARATE [Concomitant]
     Active Substance: BISOPROLOL FUMARATE
     Dosage: 10 PLUS TABLET ONCE DAILY
  7. AGGREX [Concomitant]
     Dosage: 2 DF, QD
     Route: 048
  8. LUCIDRIL [MECLOFENOXATE] [Concomitant]
     Dosage: 500 MG, BID
     Route: 048
  9. CEREBROFORT [Concomitant]
     Dosage: 800 MG, BID
     Route: 048
  10. CONTROLOC [Concomitant]
     Active Substance: PANTOPRAZOLE SODIUM
     Dosage: 40 MG, QD
     Route: 048
  11. CEMICRESTO [Concomitant]
     Dosage: 20 MG, QD
     Route: 048
  12. NITROMACK [Concomitant]
     Dosage: 2.5 MG, BID
     Route: 048
  13. GLIPTUS PLUS [Concomitant]
     Dosage: UNK, QD
     Route: 048
  14. VENAXAN [Concomitant]
     Dosage: 500 MG, QD
     Route: 048
     Dates: start: 20240603

REACTIONS (3)
  - Urinary tract infection [Recovered/Resolved]
  - Prostatomegaly [Recovered/Resolved]
  - Hypoglycaemia [Recovered/Resolved]

NARRATIVE: CASE EVENT DATE: 20240601
